FAERS Safety Report 19413722 (Version 1)
Quarter: 2021Q2

REPORT INFORMATION
  Report Type: Spontaneous
  Country: FR (occurrence: FR)
  Receive Date: 20210614
  Receipt Date: 20210614
  Transmission Date: 20210717
  Serious: Yes (Other)
  Sender: FDA-Public Use
  Company Number: NVSC2021FR129932

PATIENT
  Age: 54 Year
  Sex: Male
  Weight: 63 kg

DRUGS (1)
  1. VANCOMYCIN [Suspect]
     Active Substance: VANCOMYCIN
     Indication: SYSTEMIC INFECTION
     Dosage: 3000 MG, QD
     Route: 042

REACTIONS (2)
  - Skin necrosis [Unknown]
  - Catheter site extravasation [Unknown]
